FAERS Safety Report 10422078 (Version 1)
Quarter: 2014Q3

REPORT INFORMATION
  Report Type: Spontaneous
  Country: US (occurrence: US)
  Receive Date: 20140901
  Receipt Date: 20140901
  Transmission Date: 20150326
  Serious: No
  Sender: FDA-Public Use
  Company Number: US-SA-2013SA129856

PATIENT
  Age: 72 Year
  Sex: Female

DRUGS (4)
  1. AVAPRO [Suspect]
     Active Substance: IRBESARTAN
     Indication: BLOOD PRESSURE
     Dosage: TAKEN FROM: 5 YEARS
     Route: 065
  2. LEVOTHYROXINE [Concomitant]
     Active Substance: LEVOTHYROXINE
  3. ANTIGLAUCOMA PREPARATIONS AND MIOTICS [Concomitant]
  4. ANTIHYPERTENSIVES [Concomitant]
     Active Substance: UNSPECIFIED INGREDIENT

REACTIONS (2)
  - Malaise [Not Recovered/Not Resolved]
  - Drug ineffective [Unknown]
